FAERS Safety Report 20006533 (Version 1)
Quarter: 2021Q4

REPORT INFORMATION
  Report Type: Spontaneous
  Country: US (occurrence: US)
  Receive Date: 20211028
  Receipt Date: 20211028
  Transmission Date: 20220304
  Serious: Yes (Disabling, Other)
  Sender: FDA-Public Use
  Company Number: None

PATIENT
  Age: 65 Year
  Sex: Female
  Weight: 71.1 kg

DRUGS (1)
  1. METFORMIN HYDROCHLORIDE [Suspect]
     Active Substance: METFORMIN HYDROCHLORIDE
     Indication: Type 2 diabetes mellitus
     Dosage: ?          QUANTITY:1 TABLET(S);
     Route: 048
     Dates: start: 20211018, end: 20211023

REACTIONS (10)
  - Fatigue [None]
  - Myalgia [None]
  - Nausea [None]
  - Malaise [None]
  - Weight increased [None]
  - Illness [None]
  - Product substitution issue [None]
  - Recalled product [None]
  - Suspected product contamination [None]
  - Abdominal distension [None]

NARRATIVE: CASE EVENT DATE: 20211018
